FAERS Safety Report 24129666 (Version 1)
Quarter: 2024Q3

REPORT INFORMATION
  Report Type: Spontaneous
  Country: BR (occurrence: BR)
  Receive Date: 20240724
  Receipt Date: 20240724
  Transmission Date: 20241017
  Serious: Yes (Other)
  Sender: ABBVIE
  Company Number: BR-ABBVIE-5846762

PATIENT
  Sex: Female

DRUGS (1)
  1. BOTOX [Suspect]
     Active Substance: ONABOTULINUMTOXINA
     Indication: Product used for unknown indication
     Dosage: TIME INTERVAL: AS NECESSARY: FORM STRENGTH: 200 IU
     Route: 065

REACTIONS (4)
  - Mastication disorder [Unknown]
  - Condition aggravated [Not Recovered/Not Resolved]
  - Facial paralysis [Unknown]
  - Speech disorder [Unknown]
